FAERS Safety Report 6833686-2 (Version None)
Quarter: 2010Q3

REPORT INFORMATION
  Report Type: 
  Country: None (occurrence: None)
  Receive Date: 20100712
  Receipt Date: 20100702
  Transmission Date: 20110219
  Serious: Yes (Hospitalization, Disabling, Other)
  Sender: FDA-Public Use
  Company Number: US-MERCK-1003USA01838

PATIENT
  Age: 53 Year
  Sex: Male
  Weight: 95 kg

DRUGS (10)
  1. FOSAMAX [Suspect]
     Indication: OSTEOPOROSIS
     Route: 048
     Dates: start: 19951115, end: 20000101
  2. FOSAMAX [Suspect]
     Route: 048
     Dates: start: 19980101, end: 20020329
  3. FOSAMAX [Suspect]
     Route: 048
     Dates: end: 20090826
  4. FOSAMAX [Suspect]
     Indication: RHEUMATOID ARTHRITIS
     Route: 048
     Dates: start: 19951115, end: 20000101
  5. FOSAMAX [Suspect]
     Route: 048
     Dates: start: 19980101, end: 20020329
  6. FOSAMAX [Suspect]
     Route: 048
     Dates: end: 20090826
  7. CORTICOSTEROIDS (UNSPECIFIED) [Concomitant]
     Route: 065
  8. [THERAPY UNSPECIFIED] [Concomitant]
     Route: 065
  9. [THERAPY UNSPECIFIED] [Concomitant]
     Route: 065
  10. PREDNISONE [Suspect]
     Route: 065

REACTIONS (54)
  - ABSCESS [None]
  - ABSCESS JAW [None]
  - ACTINIC KERATOSIS [None]
  - ANXIETY [None]
  - BASAL CELL CARCINOMA [None]
  - BRONCHITIS [None]
  - CATARACT [None]
  - CELLULITIS [None]
  - CHEST PAIN [None]
  - CHRONIC SINUSITIS [None]
  - CLAVICLE FRACTURE [None]
  - CONSTIPATION [None]
  - CORONARY ARTERY DISEASE [None]
  - DENTAL CARIES [None]
  - DIVERTICULITIS [None]
  - DIZZINESS [None]
  - DYSPHAGIA [None]
  - EROSIVE OESOPHAGITIS [None]
  - FACIAL PAIN [None]
  - FALL [None]
  - FIBROSIS [None]
  - GASTROOESOPHAGEAL REFLUX DISEASE [None]
  - GLARE [None]
  - HIATUS HERNIA [None]
  - INSOMNIA [None]
  - IRRITABLE BOWEL SYNDROME [None]
  - JAW DISORDER [None]
  - MYOCARDIAL ISCHAEMIA [None]
  - NASAL CONGESTION [None]
  - NEOPLASM [None]
  - NEOPLASM SKIN [None]
  - ORAL CAVITY FISTULA [None]
  - OROPHARYNGEAL PAIN [None]
  - OSTEODYSTROPHY [None]
  - OSTEOMYELITIS [None]
  - OSTEONECROSIS [None]
  - OSTEONECROSIS OF JAW [None]
  - OSTEOPENIA [None]
  - PAROTITIS [None]
  - PHARYNGITIS [None]
  - PYREXIA [None]
  - RASH [None]
  - RHEUMATOID ARTHRITIS [None]
  - SLEEP APNOEA SYNDROME [None]
  - SQUAMOUS CELL CARCINOMA OF SKIN [None]
  - SWELLING FACE [None]
  - SYNOVITIS [None]
  - TOOTH ABSCESS [None]
  - TOOTH DISORDER [None]
  - TOOTH INFECTION [None]
  - TRISMUS [None]
  - UPPER LIMB FRACTURE [None]
  - VIITH NERVE PARALYSIS [None]
  - VISUAL ACUITY REDUCED [None]
